FAERS Safety Report 11898543 (Version 1)
Quarter: 2016Q1

REPORT INFORMATION
  Report Type: Spontaneous
  Country: CH (occurrence: CH)
  Receive Date: 20160108
  Receipt Date: 20160108
  Transmission Date: 20160526
  Serious: Yes (Hospitalization)
  Sender: FDA-Public Use
  Company Number: CH-TEVA-622356ISR

PATIENT
  Age: 17 Year
  Sex: Female
  Weight: 44 kg

DRUGS (5)
  1. DAFALGAN [Suspect]
     Active Substance: ACETAMINOPHEN
     Dosage: 3000 MILLIGRAM DAILY;
     Route: 048
     Dates: start: 20151125
  2. RISPERDAL [Suspect]
     Active Substance: RISPERIDONE
     Dosage: 1 MILLIGRAM DAILY;
     Route: 048
     Dates: start: 20151126, end: 20151130
  3. TEMESTA [Suspect]
     Active Substance: LORAZEPAM
     Dosage: 1 MILLIGRAM DAILY; PRN DURING THE PSYCHIATRIC EPISODE
     Route: 048
     Dates: start: 20151125
  4. RISPERDAL [Suspect]
     Active Substance: RISPERIDONE
     Indication: MENTAL DISORDER
     Dosage: 2 MILLIGRAM DAILY;
     Route: 048
     Dates: start: 20151130, end: 20151205
  5. IRFEN [Suspect]
     Active Substance: IBUPROFEN
     Dosage: 1200 MILLIGRAM DAILY; REPORTED AS: 3X1 AS REQUIRED
     Route: 048
     Dates: start: 20151125

REACTIONS (4)
  - Hyperprolactinaemia [Recovering/Resolving]
  - Mastitis [Recovered/Resolved]
  - Galactorrhoea [Recovered/Resolved]
  - Breast pain [Recovered/Resolved]

NARRATIVE: CASE EVENT DATE: 20151203
